FAERS Safety Report 8852194 (Version 3)
Quarter: 2014Q1

REPORT INFORMATION
  Report Type: Spontaneous
  Country: CA (occurrence: CA)
  Receive Date: 20121022
  Receipt Date: 20140303
  Transmission Date: 20141002
  Serious: Yes (Death, Hospitalization)
  Sender: FDA-Public Use
  Company Number: CA-B.I. PHARMACEUTICALS,INC./RIDGEFIELD-2012-BP-25988BP

PATIENT
  Age: 57 Year
  Sex: Female

DRUGS (1)
  1. MIRAPEX [Suspect]
     Indication: RESTLESS LEGS SYNDROME
     Dosage: 0.75 NR
     Route: 065
     Dates: start: 20060906, end: 20110417

REACTIONS (5)
  - Completed suicide [Fatal]
  - Suicide attempt [Unknown]
  - Pathological gambling [Unknown]
  - Hyperphagia [Unknown]
  - Stress [Unknown]
